FAERS Safety Report 22331747 (Version 1)
Quarter: 2023Q2

REPORT INFORMATION
  Report Type: Spontaneous
  Country: US (occurrence: None)
  Receive Date: 20230515
  Receipt Date: 20230515
  Transmission Date: 20230722
  Serious: No
  Sender: FDA-Public Use
  Company Number: None

PATIENT
  Age: 55 Year
  Sex: Female

DRUGS (1)
  1. TALTZ [Suspect]
     Active Substance: IXEKIZUMAB
     Indication: Psoriasis
     Dosage: OTHER FREQUENCY : EVERY 2 WEEKS ;?OTHER ROUTE : SC - AT WEEKS 2-12 THEN EVERY 4 WEEKS;?
     Route: 050

REACTIONS (2)
  - Staphylococcal infection [None]
  - Therapy interrupted [None]
